FAERS Safety Report 14264913 (Version 2)
Quarter: 2018Q2

REPORT INFORMATION
  Report Type: Spontaneous
  Country: NL (occurrence: NL)
  Receive Date: 20171208
  Receipt Date: 20180409
  Transmission Date: 20180711
  Serious: Yes (Other)
  Sender: FDA-Public Use
  Company Number: NL-SA-2017SA239238

PATIENT
  Sex: Male
  Weight: 80 kg

DRUGS (1)
  1. APROVEL [Suspect]
     Active Substance: IRBESARTAN
     Indication: HYPERTENSION
     Route: 048
     Dates: start: 2015

REACTIONS (4)
  - Fatigue [Unknown]
  - Transient ischaemic attack [Unknown]
  - Acute coronary syndrome [Unknown]
  - Blood pressure fluctuation [Unknown]

NARRATIVE: CASE EVENT DATE: 20150713
